FAERS Safety Report 7311806 (Version 3)
Quarter: 2014Q1

REPORT INFORMATION
  Report Type: Spontaneous
  Country: US (occurrence: US)
  Receive Date: 20100310
  Receipt Date: 20140203
  Transmission Date: 20141002
  Serious: Yes (Other)
  Sender: FDA-Public Use
  Company Number: US-JNJFOC-20100301591

PATIENT
  Sex: Male
  Weight: 62.6 kg

DRUGS (9)
  1. SANDOZ FENTANYL TRANSDERMAL SYSTEM [Suspect]
     Indication: NEURALGIA
     Route: 062
     Dates: start: 201002
  2. SANDOZ FENTANYL TRANSDERMAL SYSTEM [Suspect]
     Indication: PAIN
     Route: 062
     Dates: start: 201002
  3. SANDOZ FENTANYL TRANSDERMAL SYSTEM [Suspect]
     Indication: NEURALGIA
     Route: 062
     Dates: start: 2005, end: 201002
  4. TIZANIDINE [Concomitant]
     Route: 065
  5. DILANTIN [Concomitant]
     Indication: CONVULSION
     Route: 048
  6. LORAZEPAM [Concomitant]
     Indication: CONVULSION PROPHYLAXIS
     Route: 048
  7. CYMBALTA [Concomitant]
     Route: 065
  8. LEVOTHYROXINE [Concomitant]
     Route: 065
  9. OXYCODONE [Concomitant]
     Route: 065

REACTIONS (7)
  - Hyperventilation [Not Recovered/Not Resolved]
  - Product adhesion issue [Unknown]
  - Device leakage [Recovered/Resolved]
  - Product quality issue [Not Recovered/Not Resolved]
  - Somnolence [Not Recovered/Not Resolved]
  - Nonspecific reaction [Not Recovered/Not Resolved]
  - Product quality issue [Recovered/Resolved]
